FAERS Safety Report 9554335 (Version 1)
Quarter: 2013Q3

REPORT INFORMATION
  Report Type: Spontaneous
  Country: FR (occurrence: FR)
  Receive Date: 20130925
  Receipt Date: 20130925
  Transmission Date: 20140515
  Serious: Yes (Hospitalization)
  Sender: FDA-Public Use
  Company Number: FR-TEVA-433257ISR

PATIENT
  Age: 30 Year
  Sex: Female

DRUGS (5)
  1. VINCRISTINE TEVA [Suspect]
     Route: 042
     Dates: start: 20130425, end: 20130425
  2. MABTHERA [Suspect]
     Indication: B-CELL LYMPHOMA
     Dosage: COURSE 6
     Route: 042
     Dates: start: 20130425, end: 20130425
  3. DOXORUBICINE ACCORD [Suspect]
     Indication: B-CELL LYMPHOMA
     Dosage: COURSE 6
     Route: 042
     Dates: start: 20130425, end: 20130425
  4. ENDOXAN [Suspect]
     Indication: B-CELL LYMPHOMA
     Dosage: COURSE 6
     Route: 042
     Dates: start: 20130425, end: 20130425
  5. UROMITEXAN [Suspect]
     Route: 042
     Dates: start: 20130425, end: 20130425

REACTIONS (6)
  - Agranulocytosis [Recovered/Resolved]
  - Productive cough [Recovered/Resolved]
  - Vomiting [Recovered/Resolved]
  - Asthenia [Recovered/Resolved]
  - Chills [Recovered/Resolved]
  - Pyrexia [Recovered/Resolved]
